FAERS Safety Report 6436593-2 (Version None)
Quarter: 2009Q4

REPORT INFORMATION
  Report Type: 
  Country: None (occurrence: None)
  Receive Date: 20091111
  Receipt Date: 20091030
  Transmission Date: 20100525
  Serious: Yes (Hospitalization, Other)
  Sender: FDA-Public Use
  Company Number: JP-PFIZER INC-2009265637

PATIENT
  Age: 27 Year
  Sex: Female
  Weight: 51 kg

DRUGS (3)
  1. CABERGOLINE [Suspect]
     Indication: HYPERPROLACTINAEMIA
     Dosage: UNK
     Route: 048
     Dates: start: 20090601, end: 20090722
  2. PREMARIN [Concomitant]
     Indication: MENSTRUATION IRREGULAR
     Dosage: UNK
     Dates: start: 20090101, end: 20090722
  3. NORLUTEN [Concomitant]
     Indication: MENSTRUATION IRREGULAR
     Dosage: UNK
     Dates: start: 20090101, end: 20090722

REACTIONS (1)
  - PERICARDIAL EFFUSION [None]
